FAERS Safety Report 8988544 (Version 3)
Quarter: 2013Q2

REPORT INFORMATION
  Report Type: Spontaneous
  Country: PT (occurrence: None)
  Receive Date: 20121218
  Receipt Date: 20130404
  Transmission Date: 20140414
  Serious: Yes (Life-Threatening, Hospitalization)
  Sender: FDA-Public Use
  Company Number: FK201203760

PATIENT
  Age: 81 Year
  Sex: Female
  Weight: 70 kg

DRUGS (6)
  1. PIPERACILLIN / TAZOBACTAM [Suspect]
     Indication: DECUBITUS ULCER
     Dosage: 4 GM, 4 IN 1 D, INTRAVENOUS
     Dates: start: 20121114, end: 20121114
  2. GENTAMICIN (GENTAMICIN) [Concomitant]
  3. FLUCONAZOLE (FLUCONAZOLE) [Concomitant]
  4. PANTOPRAZOLE [Concomitant]
  5. FUROSEMIDE [Concomitant]
  6. FENTANYL [Concomitant]

REACTIONS (2)
  - Cardio-respiratory arrest [None]
  - Anaphylactic reaction [None]
